FAERS Safety Report 24579032 (Version 2)
Quarter: 2024Q4

REPORT INFORMATION
  Report Type: Spontaneous
  Country: AU (occurrence: AU)
  Receive Date: 20241105
  Receipt Date: 20241126
  Transmission Date: 20250115
  Serious: Yes (Hospitalization, Other)
  Sender: ABBVIE
  Company Number: AU-ABBVIE-5987366

PATIENT
  Sex: Female

DRUGS (1)
  1. HUMIRA [Suspect]
     Active Substance: ADALIMUMAB
     Indication: Rheumatoid arthritis
     Route: 058
     Dates: start: 20230307, end: 20240614

REACTIONS (8)
  - Noninfective encephalitis [Recovering/Resolving]
  - Lumbar puncture [Recovering/Resolving]
  - Muscular weakness [Unknown]
  - Coordination abnormal [Unknown]
  - Tremor [Unknown]
  - Drug ineffective [Unknown]
  - Musculoskeletal disorder [Unknown]
  - Lower limb fracture [Unknown]
